FAERS Safety Report 5128760-5 (Version None)
Quarter: 2006Q4

REPORT INFORMATION
  Report Type: 
  Country: None (occurrence: None)
  Receive Date: 20061017
  Receipt Date: 20061003
  Transmission Date: 20070319
  Serious: Yes (Hospitalization)
  Sender: FDA-Public Use
  Company Number: CH-MERCK-0610CHE00004

PATIENT
  Age: 52 Year
  Sex: Female
  Weight: 55 kg

DRUGS (2)
  1. STROMECTOL [Suspect]
     Route: 048
  2. ALBENDAZOLE [Suspect]
     Route: 048

REACTIONS (14)
  - AGITATION [None]
  - CARDIAC DISORDER [None]
  - CEREBRAL HYPOPERFUSION [None]
  - CHOREOATHETOSIS [None]
  - DISORIENTATION [None]
  - DYSPNOEA [None]
  - EOSINOPHILIA [None]
  - HYPERREFLEXIA [None]
  - OEDEMA PERIPHERAL [None]
  - PARAESTHESIA [None]
  - RASH MACULO-PAPULAR [None]
  - SINUS TACHYCARDIA [None]
  - SWELLING FACE [None]
  - VISION BLURRED [None]
